FAERS Safety Report 15186172 (Version 2)
Quarter: 2019Q1

REPORT INFORMATION
  Report Type: Report from Study
  Country: US (occurrence: US)
  Receive Date: 20180723
  Receipt Date: 20190130
  Transmission Date: 20190417
  Serious: No
  Sender: FDA-Public Use
  Company Number: US-EXELIXIS-CABO-18014249

PATIENT
  Sex: Male

DRUGS (4)
  1. CABOMETYX [Suspect]
     Active Substance: CABOZANTINIB S-MALATE
     Dosage: 40 MG, UNK
     Route: 048
     Dates: start: 20180903
  2. LENVIMA [Suspect]
     Active Substance: LENVATINIB
     Indication: THYROID CANCER
     Dosage: UNK
  3. CABOMETYX [Suspect]
     Active Substance: CABOZANTINIB S-MALATE
     Indication: THYROID CANCER
     Dosage: 60 MG, QD, ON EMPTY STOMACH
     Route: 048
     Dates: start: 20180428
  4. HCTZ [Concomitant]
     Active Substance: HYDROCHLOROTHIAZIDE
     Dosage: UNK

REACTIONS (13)
  - Diarrhoea [Recovered/Resolved]
  - Dyspnoea [Unknown]
  - Dysgeusia [Unknown]
  - Dysphonia [Recovered/Resolved]
  - Stomatitis [Unknown]
  - Dental caries [Unknown]
  - Insomnia [Unknown]
  - Oedema peripheral [Unknown]
  - Gingival abscess [Unknown]
  - Fatigue [Recovered/Resolved]
  - Off label use [Unknown]
  - Weight decreased [Unknown]
  - Post procedural infection [Unknown]

NARRATIVE: CASE EVENT DATE: 2018
